FAERS Safety Report 12179275 (Version 1)
Quarter: 2016Q1

REPORT INFORMATION
  Report Type: Spontaneous
  Country: US (occurrence: None)
  Receive Date: 20160314
  Receipt Date: 20160314
  Transmission Date: 20160526
  Serious: No
  Sender: FDA-Public Use
  Company Number: None

PATIENT
  Age: 88 Year
  Sex: Male
  Weight: 104.78 kg

DRUGS (10)
  1. ESBRIET [Suspect]
     Active Substance: PIRFENIDONE
     Indication: IDIOPATHIC PULMONARY FIBROSIS
     Dosage: 3 PILLS THREE TIMES DAILY TAKEN BY MOUTH
     Route: 048
  2. TRIAMTERENE. [Concomitant]
     Active Substance: TRIAMTERENE
  3. PROTONIX [Concomitant]
     Active Substance: PANTOPRAZOLE SODIUM
  4. O2 [Concomitant]
  5. ASPIRIN. [Concomitant]
     Active Substance: ASPIRIN
  6. SIMVASTATIN. [Concomitant]
     Active Substance: SIMVASTATIN
  7. AMLODIPINE [Concomitant]
     Active Substance: AMLODIPINE BESYLATE
  8. CODIFY [Concomitant]
  9. METOPROLOL. [Concomitant]
     Active Substance: METOPROLOL
  10. LISINOPRIL. [Concomitant]
     Active Substance: LISINOPRIL

REACTIONS (7)
  - Abnormal behaviour [None]
  - Pneumonia [None]
  - No therapeutic response [None]
  - Family stress [None]
  - Drug dose omission [None]
  - Incorrect dose administered [None]
  - Lung disorder [None]

NARRATIVE: CASE EVENT DATE: 20160308
